FAERS Safety Report 6644411-2 (Version None)
Quarter: 2010Q1

REPORT INFORMATION
  Report Type: 
  Country: None (occurrence: None)
  Receive Date: 20100319
  Receipt Date: 20100319
  Transmission Date: 20100710
  Serious: Yes (Other)
  Sender: FDA-Public Use
  Company Number: None

PATIENT
  Sex: Male
  Weight: 89.8122 kg

DRUGS (2)
  1. IMITREX [Suspect]
     Dosage: 25MG 1 TAB@ONSET ORAL
     Route: 048
     Dates: start: 20071212
  2. IMITREX [Suspect]
     Dosage: 50MG 1 TAB @ ONSET ORAL
     Route: 048
     Dates: start: 20080228

REACTIONS (1)
  - PRODUCT SUBSTITUTION ISSUE [None]
